FAERS Safety Report 6575626-X (Version None)
Quarter: 2010Q1

REPORT INFORMATION
  Report Type: 
  Country: None (occurrence: None)
  Receive Date: 20100209
  Receipt Date: 20100201
  Transmission Date: 20100710
  Serious: Yes (Other)
  Sender: FDA-Public Use
  Company Number: B0631915A

PATIENT
  Sex: Female

DRUGS (5)
  1. MELPHALAN HYDROCHLORIDE [Suspect]
     Indication: LIGHT CHAIN DISEASE
     Dosage: 140MGM2 UNKNOWN
     Route: 065
  2. VINCRISTINE [Concomitant]
     Route: 065
  3. ADRIAMYCIN PFS [Concomitant]
     Route: 065
  4. DEXAMETHASONE [Concomitant]
     Route: 065
  5. AUTOGRAFT OF PERIPHERAL BLOOD STEM CELLS [Concomitant]

REACTIONS (6)
  - BLOOD CREATININE INCREASED [None]
  - MUCOSAL INFLAMMATION [None]
  - NEPHROTIC SYNDROME [None]
  - PROTEINURIA [None]
  - RENAL FAILURE [None]
  - SEPSIS [None]
